FAERS Safety Report 7013003-8 (Version None)
Quarter: 2010Q3

REPORT INFORMATION
  Report Type: 
  Country: None (occurrence: None)
  Receive Date: 20100924
  Receipt Date: 20100916
  Transmission Date: 20110219
  Serious: Yes (Hospitalization)
  Sender: FDA-Public Use
  Company Number: GB-AMGEN-QUU438878

PATIENT
  Sex: Female

DRUGS (1)
  1. NPLATE [Suspect]
     Indication: IDIOPATHIC THROMBOCYTOPENIC PURPURA

REACTIONS (4)
  - HIP ARTHROPLASTY [None]
  - PLATELET COUNT DECREASED [None]
  - POST PROCEDURAL HAEMORRHAGE [None]
  - THERAPEUTIC RESPONSE DECREASED [None]
